FAERS Safety Report 20425340 (Version 3)
Quarter: 2022Q1

REPORT INFORMATION
  Report Type: Spontaneous
  Country: BR (occurrence: BR)
  Receive Date: 20220204
  Receipt Date: 20220214
  Transmission Date: 20220424
  Serious: Yes (Other)
  Sender: FDA-Public Use
  Company Number: BR-CELLTRION INC.-2022BR001027

PATIENT

DRUGS (13)
  1. HERZUMA [Suspect]
     Active Substance: TRASTUZUMAB-PKRB
     Indication: Breast cancer
     Dosage: 6 MG/KG
     Route: 042
     Dates: start: 20211001
  2. HERZUMA [Suspect]
     Active Substance: TRASTUZUMAB-PKRB
     Dosage: 498MG (5TH CYCLE)
     Route: 042
     Dates: start: 20211228
  3. HERZUMA [Suspect]
     Active Substance: TRASTUZUMAB-PKRB
     Dosage: 6 MG/KG (6TH CYCLE); CHANGE MAY HAVE OCCURRED DUE TO THE CHANGE IN THE PATIENT^S WEIGHT
     Route: 042
     Dates: start: 20220201
  4. CARBOPLATIN [Suspect]
     Active Substance: CARBOPLATIN
     Indication: Breast cancer
     Dosage: 5 AUC
     Route: 042
     Dates: start: 20211001
  5. CARBOPLATIN [Suspect]
     Active Substance: CARBOPLATIN
     Dosage: 5 AUC
     Route: 042
     Dates: start: 20211001
  6. PERJETA [Suspect]
     Active Substance: PERTUZUMAB
     Indication: Breast cancer
     Dosage: 420 MG
     Route: 042
     Dates: start: 20211001
  7. DOCETAXEL [Suspect]
     Active Substance: DOCETAXEL
     Indication: Breast cancer
     Dosage: 60 MG/M2
     Route: 042
     Dates: start: 20211001
  8. CISPLATIN [Suspect]
     Active Substance: CISPLATIN
     Indication: Breast cancer
  9. COMPLEX B [VITAMIN B COMPLEX] [Concomitant]
     Indication: Product used for unknown indication
     Dosage: ONCE/DAY
     Route: 042
     Dates: start: 20211001
  10. PALONOSETRON [Concomitant]
     Active Substance: PALONOSETRON
     Indication: Premedication
     Dosage: 0.25 MG
     Route: 042
     Dates: start: 20211001
  11. FOSAPREPITANT [Concomitant]
     Active Substance: FOSAPREPITANT
     Indication: Premedication
     Dosage: 150 MG
     Route: 042
     Dates: start: 20211001
  12. DIPHENHYDRAMINE [Concomitant]
     Active Substance: DIPHENHYDRAMINE
     Indication: Premedication
     Dosage: 50 MG
     Route: 042
     Dates: start: 20211001
  13. DEXAMETHASONE [Concomitant]
     Active Substance: DEXAMETHASONE
     Indication: Premedication
     Dosage: 12 MILLIGRAM
     Route: 042
     Dates: start: 20211001

REACTIONS (4)
  - Diarrhoea [Not Recovered/Not Resolved]
  - Thrombocytopenia [Recovered/Resolved]
  - Influenza [Unknown]
  - Intentional dose omission [Unknown]

NARRATIVE: CASE EVENT DATE: 20220105
